FAERS Safety Report 16853916 (Version 1)
Quarter: 2019Q3

REPORT INFORMATION
  Report Type: Spontaneous
  Country: RO (occurrence: RO)
  Receive Date: 20190926
  Receipt Date: 20190926
  Transmission Date: 20191005
  Serious: Yes (Other)
  Sender: FDA-Public Use
  Company Number: RO-ROCHE-2412034

PATIENT
  Age: 61 Year
  Sex: Female

DRUGS (3)
  1. KADCYLA [Suspect]
     Active Substance: ADO-TRASTUZUMAB EMTANSINE
     Indication: BREAST CANCER METASTATIC
     Route: 042
     Dates: start: 20190115
  2. EPIRUBICIN [Concomitant]
     Active Substance: EPIRUBICIN
  3. HERCEPTIN [Suspect]
     Active Substance: TRASTUZUMAB
     Indication: BREAST CANCER
     Route: 058
     Dates: start: 20170921, end: 2018

REACTIONS (6)
  - Interstitial lung disease [Unknown]
  - Cerebral disorder [Unknown]
  - Hepatic lesion [Unknown]
  - Pleural fibrosis [Unknown]
  - Colon adenoma [Unknown]
  - Thrombocytopenia [Unknown]

NARRATIVE: CASE EVENT DATE: 201812
